FAERS Safety Report 5884778-6 (Version None)
Quarter: 2008Q3

REPORT INFORMATION
  Report Type: 
  Country: None (occurrence: None)
  Receive Date: 20080915
  Receipt Date: 20080915
  Transmission Date: 20090109
  Serious: Yes (Life-Threatening, Hospitalization, Congenital Anomaly, Other)
  Sender: FDA-Public Use
  Company Number: None

PATIENT
  Age: 52 Year
  Sex: Male
  Weight: 114 kg

DRUGS (1)
  1. FLEXERIL [Suspect]
     Indication: TENSION HEADACHE
     Dosage: 10 MG

REACTIONS (1)
  - HAEMOLYTIC ANAEMIA [None]
